FAERS Safety Report 8497940 (Version 7)
Quarter: 2013Q4

REPORT INFORMATION
  Report Type: Report from Study
  Country: US (occurrence: US)
  Receive Date: 20120406
  Receipt Date: 20131125
  Transmission Date: 20140711
  Serious: Yes (Hospitalization, Other)
  Sender: FDA-Public Use
  Company Number: US-ACTELION-A-US2012-63404

PATIENT
  Age: 72 Year
  Sex: Female

DRUGS (3)
  1. TRACLEER [Suspect]
     Indication: PULMONARY ARTERIAL HYPERTENSION
     Dosage: UNK MG, UNK
     Route: 048
     Dates: start: 20120111
  2. ASPIRIN [Concomitant]
  3. COUMADIN [Concomitant]

REACTIONS (7)
  - Pallor [Recovering/Resolving]
  - Dyspnoea [Recovering/Resolving]
  - Coronary artery disease [Recovering/Resolving]
  - Aortic surgery [Recovering/Resolving]
  - Angioplasty [Recovering/Resolving]
  - Coronary arterial stent insertion [Recovering/Resolving]
  - Cardiac pacemaker insertion [Unknown]
